FAERS Safety Report 5501133-9 (Version None)
Quarter: 2007Q4

REPORT INFORMATION
  Report Type: 
  Country: None (occurrence: None)
  Receive Date: 20071026
  Receipt Date: 20071012
  Transmission Date: 20080405
  Serious: Yes (Hospitalization)
  Sender: FDA-Public Use
  Company Number: 2007SP003412

PATIENT
  Sex: Female

DRUGS (7)
  1. XOPENEX [Suspect]
     Indication: ASTHMA
     Dosage: 1.25 UNK;1X;INHALATION
     Route: 055
     Dates: start: 20060901, end: 20060901
  2. XOPENEX [Suspect]
     Indication: CONDITION AGGRAVATED
     Dosage: 1.25 UNK;1X;INHALATION
     Route: 055
     Dates: start: 20060901, end: 20060901
  3. PROMETHAZINE [Suspect]
  4. DEMEROL [Suspect]
  5. ALBUTEROL [Concomitant]
  6. ZYRTEC [Concomitant]
  7. SINGULAIR [Concomitant]

REACTIONS (4)
  - DRUG HYPERSENSITIVITY [None]
  - INTESTINAL OBSTRUCTION [None]
  - LUNG DISORDER [None]
  - PAIN [None]
